FAERS Safety Report 7984420-4 (Version None)
Quarter: 2011Q4

REPORT INFORMATION
  Report Type: 
  Country: None (occurrence: None)
  Receive Date: 20111216
  Receipt Date: 20111206
  Transmission Date: 20120403
  Serious: Yes (Other)
  Sender: FDA-Public Use
  Company Number: CA-ELI_LILLY_AND_COMPANY-CA201108000643

PATIENT
  Age: 55 Year
  Sex: Female

DRUGS (8)
  1. PREDNISONE [Concomitant]
     Indication: ADDISON'S DISEASE
  2. FLORINEF [Concomitant]
  3. FORTEO [Suspect]
     Indication: OSTEOPOROSIS
     Dosage: 20 UG, QD
     Route: 058
     Dates: start: 20110519
  4. RANITIDINE [Concomitant]
  5. FORTEO [Suspect]
     Dosage: 20 UG, QD
     Route: 058
     Dates: end: 20110728
  6. IMURAN [Concomitant]
  7. ESTRACE [Concomitant]
  8. VITAMIN D [Concomitant]

REACTIONS (5)
  - JOINT EFFUSION [None]
  - ARTHRALGIA [None]
  - COMPLEX PARTIAL SEIZURES [None]
  - ADDISON'S DISEASE [None]
  - DIZZINESS [None]
